FAERS Safety Report 15220416 (Version 1)
Quarter: 2018Q3

REPORT INFORMATION
  Report Type: Spontaneous
  Country: US (occurrence: US)
  Receive Date: 20180731
  Receipt Date: 20180731
  Transmission Date: 20181010
  Serious: No
  Sender: FDA-Public Use
  Company Number: US-PFIZER INC-2018305912

PATIENT
  Age: 66 Year
  Sex: Female

DRUGS (6)
  1. CODEINE [Suspect]
     Active Substance: CODEINE
     Dosage: UNK
  2. TRAMADOL. [Suspect]
     Active Substance: TRAMADOL
     Dosage: UNK
  3. TOPAMAX [Suspect]
     Active Substance: TOPIRAMATE
     Dosage: UNK
  4. LODINE [Suspect]
     Active Substance: ETODOLAC
     Dosage: UNK
  5. CIPRO [Suspect]
     Active Substance: CIPROFLOXACIN HYDROCHLORIDE
     Dosage: UNK
  6. CELEBREX [Suspect]
     Active Substance: CELECOXIB
     Dosage: UNK

REACTIONS (1)
  - Drug hypersensitivity [Unknown]
